FAERS Safety Report 8050132-4 (Version None)
Quarter: 2012Q1

REPORT INFORMATION
  Report Type: 
  Country: None (occurrence: None)
  Receive Date: 20120117
  Receipt Date: 20120103
  Transmission Date: 20120608
  Serious: Yes (Hospitalization, Other)
  Sender: FDA-Public Use
  Company Number: US-MERCK-1109USA00245

PATIENT
  Age: 63 Year
  Sex: Female

DRUGS (7)
  1. ACTONEL [Concomitant]
     Indication: OSTEOPOROSIS
     Route: 065
     Dates: start: 20050101, end: 20110201
  2. MAXZIDE [Concomitant]
     Indication: HYPERTENSION
     Route: 065
     Dates: start: 19910101
  3. PRILOSEC [Concomitant]
     Route: 048
     Dates: start: 20010101
  4. FOSAMAX [Suspect]
     Indication: OSTEOPOROSIS
     Route: 048
     Dates: start: 20050101, end: 20110201
  5. PREDNISONE [Concomitant]
     Route: 065
     Dates: start: 19990101
  6. VITAMINS (UNSPECIFIED) [Concomitant]
     Route: 065
     Dates: start: 20010101
  7. ALLEGRA [Concomitant]
     Indication: HYPERSENSITIVITY
     Route: 065

REACTIONS (35)
  - FEMUR FRACTURE [None]
  - LYMPHOEDEMA [None]
  - HYPOPROTEINAEMIA [None]
  - HYPOALBUMINAEMIA [None]
  - HYPERLIPIDAEMIA [None]
  - ALVEOLITIS ALLERGIC [None]
  - DEPRESSION [None]
  - ARTHROPATHY [None]
  - HYPOXIA [None]
  - CARDIAC FAILURE CONGESTIVE [None]
  - HYPOAESTHESIA [None]
  - MUSCULAR WEAKNESS [None]
  - ARTHRALGIA [None]
  - CATARACT [None]
  - LEUKOCYTOSIS [None]
  - URINARY RETENTION [None]
  - PNEUMONIA [None]
  - OSTEOPENIA [None]
  - RHEUMATOID ARTHRITIS [None]
  - DEVICE DISLOCATION [None]
  - GALLBLADDER DISORDER [None]
  - RHINITIS ALLERGIC [None]
  - PHLEBOLITH [None]
  - CHRONIC OBSTRUCTIVE PULMONARY DISEASE [None]
  - ANAEMIA OF CHRONIC DISEASE [None]
  - BLOOD CHOLESTEROL INCREASED [None]
  - URINARY TRACT INFECTION [None]
  - SOFT TISSUE DISORDER [None]
  - BLADDER DISORDER [None]
  - CARDIOMEGALY [None]
  - INTERSTITIAL LUNG DISEASE [None]
  - OSTEOARTHRITIS [None]
  - HYPOTHYROIDISM [None]
  - FRACTURE NONUNION [None]
  - FALL [None]
